FAERS Safety Report 7865538-3 (Version None)
Quarter: 2011Q4

REPORT INFORMATION
  Report Type: 
  Country: None (occurrence: None)
  Receive Date: 20111028
  Receipt Date: 20110114
  Transmission Date: 20120403
  Serious: No
  Sender: FDA-Public Use
  Company Number: US-GLAXOSMITHKLINE-A0906180A

PATIENT
  Age: 8 Year
  Sex: Male
  Weight: 30.3 kg

DRUGS (8)
  1. ADVAIR DISKUS 100/50 [Suspect]
     Indication: ASTHMA
     Dosage: 1PUFF TWICE PER DAY
     Route: 055
     Dates: start: 20101209, end: 20110106
  2. ORAPRED [Concomitant]
     Dates: start: 20100916, end: 20100920
  3. CLARINEX [Concomitant]
     Indication: RHINITIS ALLERGIC
     Dosage: 5MG PER DAY
     Route: 048
     Dates: start: 20101209
  4. ORAPRED [Suspect]
     Indication: PRODUCT USED FOR UNKNOWN INDICATION
     Dosage: 15MG PER DAY
     Dates: start: 20101210
  5. SINGULAIR [Concomitant]
     Indication: RHINITIS ALLERGIC
     Dosage: 5MG PER DAY
     Route: 048
     Dates: start: 20091012
  6. NASONEX [Concomitant]
     Indication: RHINITIS ALLERGIC
     Route: 045
     Dates: start: 20100601
  7. XOPENEX [Concomitant]
     Indication: ASTHMA
     Dosage: .63MG AS REQUIRED
     Route: 055
     Dates: start: 20101209
  8. SOLU-MEDROL [Concomitant]
     Dosage: 40MG SINGLE DOSE
     Route: 030
     Dates: start: 20101209

REACTIONS (6)
  - ALOPECIA [None]
  - EOSINOPHIL COUNT INCREASED [None]
  - ALOPECIA AREATA [None]
  - DYSPHONIA [None]
  - OROPHARYNGEAL PAIN [None]
  - INSOMNIA [None]
